FAERS Safety Report 6471140-0 (Version None)
Quarter: 2009Q4

REPORT INFORMATION
  Report Type: 
  Country: None (occurrence: None)
  Receive Date: 20091119
  Receipt Date: 20090810
  Transmission Date: 20100525
  Serious: No
  Sender: FDA-Public Use
  Company Number: WAES 0908USA01567

PATIENT
  Age: 67 Year
  Sex: Male

DRUGS (9)
  1. JANUVIA [Suspect]
     Indication: TYPE 2 DIABETES MELLITUS
     Dosage: 100 MG/DAILY/PO
     Route: 048
     Dates: start: 20090721, end: 20090731
  2. DIGITEK [Concomitant]
  3. LOVAZA [Concomitant]
  4. PAXIL [Concomitant]
  5. TOPROL-XL [Concomitant]
  6. FUROSEMIDE [Concomitant]
  7. QUINAPRIL HYDROCHLORIDE [Concomitant]
  8. SPIRONOLATONE [Concomitant]
  9. WARFARIN [Concomitant]

REACTIONS (1)
  - URTICARIA [None]
